FAERS Safety Report 17670897 (Version 1)
Quarter: 2020Q2

REPORT INFORMATION
  Report Type: Spontaneous
  Country: GB (occurrence: GB)
  Receive Date: 20200415
  Receipt Date: 20200415
  Transmission Date: 20200713
  Serious: Yes (Other)
  Sender: FDA-Public Use
  Company Number: GB-MYLANLABS-2020M1037430

PATIENT
  Age: 77 Year
  Sex: Female

DRUGS (10)
  1. TRAMADOL. [Suspect]
     Active Substance: TRAMADOL
     Indication: ARTHRALGIA
     Dosage: 75 MILLIGRAM, 2/DAY
     Route: 048
  2. TRAMADOL. [Suspect]
     Active Substance: TRAMADOL
     Dosage: 100 MILLIGRAM, 2/DAY
     Route: 048
     Dates: start: 201911
  3. TRAMADOL. [Suspect]
     Active Substance: TRAMADOL
     Indication: ARTHRALGIA
     Dosage: 50 MILLIGRAM, 2/DAY
     Route: 065
  4. TRAMADOL. [Suspect]
     Active Substance: TRAMADOL
     Dosage: 50 MILLIGRAM, 2/DAY
     Route: 065
     Dates: start: 201911
  5. TRAMADOL. [Suspect]
     Active Substance: TRAMADOL
     Dosage: UNK
     Route: 065
     Dates: start: 2008, end: 201911
  6. TRAMADOL. [Suspect]
     Active Substance: TRAMADOL
     Dosage: 200 MILLIGRAM, 1/DAY
     Route: 065
  7. TRAMADOL. [Suspect]
     Active Substance: TRAMADOL
     Dosage: 225 MILLIGRAM
     Route: 048
     Dates: start: 202003
  8. TRAMADOL. [Suspect]
     Active Substance: TRAMADOL
     Dosage: 125 MILLIGRAM, EVERY 12 HRS
     Route: 065
  9. TRAMADOL. [Suspect]
     Active Substance: TRAMADOL
     Dosage: 250 MILLIGRAM
     Route: 048
     Dates: end: 202002
  10. TRAMADOL. [Suspect]
     Active Substance: TRAMADOL
     Dosage: UNK
     Route: 065

REACTIONS (10)
  - Limb discomfort [Unknown]
  - Influenza [Unknown]
  - Malaise [Unknown]
  - Disturbance in attention [Unknown]
  - Detoxification [Unknown]
  - Therapeutic product effect delayed [Unknown]
  - Drug dependence [Not Recovered/Not Resolved]
  - Withdrawal syndrome [Unknown]
  - Eye pruritus [Unknown]
  - Fatigue [Unknown]
